FAERS Safety Report 9667817 (Version 2)
Quarter: 2013Q4

REPORT INFORMATION
  Report Type: Spontaneous
  Country: IT (occurrence: IT)
  Receive Date: 20131104
  Receipt Date: 20131118
  Transmission Date: 20140711
  Serious: Yes (Death, Life-Threatening)
  Sender: FDA-Public Use
  Company Number: IT-BAYER-2013-134223

PATIENT
  Age: 70 Year
  Sex: Male

DRUGS (8)
  1. CARDIOASPIRIN [Suspect]
     Dosage: UNK
     Dates: start: 20130101, end: 20130831
  2. TICAGRELOR [Suspect]
     Dosage: 1 DF, BID
     Dates: start: 20130101, end: 20130831
  3. IVABRADINE [Concomitant]
     Dosage: 5 MG, BID
  4. RAMIPRIL [Concomitant]
     Dosage: DAILY DOSE 10 MG
  5. LASIX [Concomitant]
     Dosage: DAILY DOSE 50 MG
  6. HMG COA REDUCTASE INHIBITORS [Concomitant]
  7. AMLODIPINE [Concomitant]
     Dosage: DAILY DOSE 10 MG
  8. INSULIN [Concomitant]

REACTIONS (2)
  - Headache [Fatal]
  - Loss of consciousness [Fatal]
